FAERS Safety Report 22259069 (Version 3)
Quarter: 2023Q2

REPORT INFORMATION
  Report Type: Report from Study
  Country: EG (occurrence: EG)
  Receive Date: 20230427
  Receipt Date: 20230522
  Transmission Date: 20230722
  Serious: Yes (Hospitalization, Other)
  Sender: FDA-Public Use
  Company Number: EG-002147023-NVSC2023EG092459

PATIENT
  Age: 60 Year
  Sex: Female

DRUGS (2)
  1. FULVESTRANT [Suspect]
     Active Substance: FULVESTRANT
     Indication: Breast cancer
     Dosage: 2 DOSAGE FORM, Q4W (2 PREFILLED SYRINGE 250 MG EACH (500 MG))
     Route: 030
     Dates: start: 20220815
  2. CIDOPHAGE [Concomitant]
     Indication: Diabetes mellitus
     Dosage: 1 DOSAGE FORM, QD (STARTED 2 YEARS AGO)
     Route: 048
     Dates: end: 20230423

REACTIONS (13)
  - Respiratory failure [Not Recovered/Not Resolved]
  - Renal disorder [Recovered/Resolved]
  - Urinary retention [Recovered/Resolved]
  - Pulmonary oedema [Not Recovered/Not Resolved]
  - Dyspnoea [Not Recovered/Not Resolved]
  - Insomnia [Not Recovered/Not Resolved]
  - Hepatic cancer [Not Recovered/Not Resolved]
  - Second primary malignancy [Not Recovered/Not Resolved]
  - Tremor [Not Recovered/Not Resolved]
  - Dehydration [Not Recovered/Not Resolved]
  - Abdominal pain upper [Not Recovered/Not Resolved]
  - Decreased appetite [Not Recovered/Not Resolved]
  - Fatigue [Not Recovered/Not Resolved]

NARRATIVE: CASE EVENT DATE: 20230323
